FAERS Safety Report 6746421-3 (Version None)
Quarter: 2010Q2

REPORT INFORMATION
  Report Type: 
  Country: None (occurrence: None)
  Receive Date: 20100528
  Receipt Date: 20100517
  Transmission Date: 20101027
  Serious: Yes (Disabling, Other)
  Sender: FDA-Public Use
  Company Number: FR-JNJFOC-20100508233

PATIENT
  Age: 50 Year
  Sex: Male

DRUGS (9)
  1. REMICADE [Suspect]
     Indication: RHEUMATOID ARTHRITIS
     Route: 042
     Dates: start: 20081121, end: 20091203
  2. CORTANCYL [Concomitant]
  3. DAFALGAN CODEINE [Concomitant]
  4. FOSAMAX [Concomitant]
  5. IDEOS [Concomitant]
  6. METHOTREXATE [Concomitant]
  7. METHOTREXATE [Concomitant]
  8. SPECIAFOLDINE [Concomitant]
  9. SPECIAFOLDINE [Concomitant]

REACTIONS (2)
  - GLYCOSURIA [None]
  - OPTIC ISCHAEMIC NEUROPATHY [None]
